FAERS Safety Report 17684445 (Version 1)
Quarter: 2020Q2

REPORT INFORMATION
  Report Type: Spontaneous
  Country: US (occurrence: US)
  Receive Date: 20200420
  Receipt Date: 20200420
  Transmission Date: 20200714
  Serious: Yes (Other)
  Sender: FDA-Public Use
  Company Number: US-BECTON DICKINSON-2020BDN00120

PATIENT

DRUGS (4)
  1. LIDOCAINE. [Suspect]
     Active Substance: LIDOCAINE
     Dosage: UNK
     Dates: start: 20200221
  2. CHLORAPREP WITH TINT [Suspect]
     Active Substance: CHLORHEXIDINE GLUCONATE\ISOPROPYL ALCOHOL
     Indication: INFECTION PROPHYLAXIS
     Dosage: UNK
     Route: 061
     Dates: start: 20200221, end: 20200221
  3. CHLORAPREP [Suspect]
     Active Substance: CHLORHEXIDINE GLUCONATE\ISOPROPYL ALCOHOL
     Indication: INFECTION PROPHYLAXIS
     Dosage: UNK
     Route: 061
     Dates: start: 20200221, end: 20200221
  4. DOT PROVENA SP 4F DL MAX W/3CG [DEVICE] [Suspect]
     Active Substance: DEVICE

REACTIONS (1)
  - Deep vein thrombosis [Unknown]

NARRATIVE: CASE EVENT DATE: 2020
